FAERS Safety Report 4302972-2 (Version None)
Quarter: 2004Q1

REPORT INFORMATION
  Report Type: 
  Country: None (occurrence: None)
  Receive Date: 20040224
  Receipt Date: 20031126
  Transmission Date: 20041129
  Serious: Yes (Hospitalization)
  Sender: FDA-Public Use
  Company Number: US-GLAXOSMITHKLINE-A0442402A

PATIENT
  Sex: Female

DRUGS (1)
  1. IMITREX [Suspect]
     Indication: HEADACHE
     Dosage: 100MG AS REQUIRED
     Route: 048

REACTIONS (2)
  - CONDITION AGGRAVATED [None]
  - HEADACHE [None]
